FAERS Safety Report 8915366 (Version 1)
Quarter: 2012Q4

REPORT INFORMATION
  Report Type: 
  Country: US (occurrence: US)
  Receive Date: 20121119
  Receipt Date: 20121119
  Transmission Date: 20130627
  Serious: No
  Sender: FDA-Public Use
  Company Number: US-PFIZER INC-2012285385

PATIENT
  Sex: Male

DRUGS (4)
  1. FLUOROURACIL [Suspect]
     Indication: PANCREATIC CANCER
     Dosage: cyclic, every 2-3 weeks
     Dates: start: 2012
  2. IRINOTECAN HCL [Suspect]
     Indication: PANCREATIC CANCER
     Dosage: cyclic, every 2-3 weeks
     Dates: start: 2012
  3. ELOXATIN [Suspect]
     Indication: PANCREATIC CANCER
     Dosage: cyclic, every 2-3 weeks
     Route: 041
     Dates: start: 2012
  4. FOLINIC ACID [Suspect]
     Indication: PANCREATIC CANCER
     Dosage: cyclic, every 2-3 weeks
     Dates: start: 2012

REACTIONS (1)
  - Tongue disorder [Recovered/Resolved]
